FAERS Safety Report 9085343 (Version 1)
Quarter: 2013Q1

REPORT INFORMATION
  Report Type: Report from Study
  Country: US (occurrence: US)
  Receive Date: 20130131
  Receipt Date: 20130131
  Transmission Date: 20140127
  Serious: No
  Sender: FDA-Public Use
  Company Number: US-ABBOTT-12P-163-0989773-00

PATIENT
  Age: 54 Year
  Sex: Female

DRUGS (10)
  1. HUMIRA [Suspect]
     Indication: RHEUMATOID ARTHRITIS
     Dates: start: 20120914
  2. B12 [Concomitant]
     Indication: PRODUCT USED FOR UNKNOWN INDICATION
     Dosage: SHOT MONTHLY
  3. NAPROSYN [Concomitant]
     Indication: PAIN
  4. TRAVATAN [Concomitant]
     Indication: GLAUCOMA
     Dosage: EYE DROPS DAILY
  5. VICODIN [Concomitant]
     Indication: PAIN
  6. MTV [Concomitant]
     Indication: PRODUCT USED FOR UNKNOWN INDICATION
  7. CALCUIM AND VITAMIN D [Concomitant]
     Indication: PRODUCT USED FOR UNKNOWN INDICATION
  8. NIACIN [Concomitant]
     Indication: PRODUCT USED FOR UNKNOWN INDICATION
     Dosage: DAILY
  9. CLARITIN [Concomitant]
     Indication: PRODUCT USED FOR UNKNOWN INDICATION
  10. FOSAMAX [Concomitant]
     Indication: OSTEOPOROSIS
     Dosage: 70MG WEEKLY

REACTIONS (2)
  - Injection site pain [Not Recovered/Not Resolved]
  - Pyrexia [Unknown]
